FAERS Safety Report 5298850-5 (Version None)
Quarter: 2007Q2

REPORT INFORMATION
  Report Type: 
  Country: None (occurrence: None)
  Receive Date: 20070417
  Receipt Date: 20070410
  Transmission Date: 20071010
  Serious: Yes (Other)
  Sender: FDA-Public Use
  Company Number: GB-JNJFOC-20070402172

PATIENT
  Sex: Female

DRUGS (11)
  1. REMICADE [Suspect]
     Indication: RHEUMATOID ARTHRITIS
     Route: 042
  2. METHOTREXATE [Concomitant]
  3. AMITRIPTYLINE HCL [Concomitant]
  4. DIHYDROCODEINE BITARTRATE INJ [Concomitant]
  5. ENALAPRIL MALEATE [Concomitant]
  6. FOLIC ACID [Concomitant]
  7. FRUSEMIDE [Concomitant]
  8. METFORMIN HCL [Concomitant]
  9. OMEPRAZOLE [Concomitant]
  10. PAROXETINE [Concomitant]
  11. TEMAZEPAM [Concomitant]

REACTIONS (1)
  - BASAL CELL CARCINOMA [None]
